FAERS Safety Report 9159566 (Version 1)
Quarter: 2013Q1

REPORT INFORMATION
  Report Type: Spontaneous
  Country: US (occurrence: US)
  Receive Date: 20130313
  Receipt Date: 20130313
  Transmission Date: 20140127
  Serious: No
  Sender: FDA-Public Use
  Company Number: US-MYLANLABS-2013S1001685

PATIENT
  Sex: Male
  Weight: 83.92 kg

DRUGS (10)
  1. PIOGLITAZONE [Suspect]
     Indication: DIABETES MELLITUS
     Route: 048
  2. ACTOS [Suspect]
     Indication: DIABETES MELLITUS
  3. METFORMIN HYDROCHLORIDE [Suspect]
     Indication: DIABETES MELLITUS
     Route: 048
  4. OMEPRAZOLE [Suspect]
     Route: 048
  5. LISINOPRIL [Suspect]
     Route: 048
  6. SIMVASTATIN [Suspect]
     Route: 048
  7. JANUVIA [Suspect]
     Indication: DIABETES MELLITUS
     Route: 048
  8. GLIPIZIDE [Suspect]
     Indication: DIABETES MELLITUS
     Route: 048
  9. NEPHPLEX [Suspect]
     Route: 048
  10. LOVAZA [Suspect]
     Route: 048

REACTIONS (3)
  - Somnolence [Not Recovered/Not Resolved]
  - Blood pressure increased [Not Recovered/Not Resolved]
  - Dizziness [Not Recovered/Not Resolved]
